FAERS Safety Report 5689589-2 (Version None)
Quarter: 2008Q1

REPORT INFORMATION
  Report Type: 
  Country: None (occurrence: None)
  Receive Date: 20080331
  Receipt Date: 20080324
  Transmission Date: 20080703
  Serious: Yes (Other)
  Sender: FDA-Public Use
  Company Number: US-BOEHRINGER INGELHEIM GMBH, GERMANY-2008-BP-04564BP

PATIENT
  Sex: Male

DRUGS (1)
  1. MICARDIS [Suspect]
     Dates: start: 20080201, end: 20080301

REACTIONS (1)
  - ANGIOEDEMA [None]
